FAERS Safety Report 5338906-1 (Version None)
Quarter: 2007Q2

REPORT INFORMATION
  Report Type: 
  Country: None (occurrence: None)
  Receive Date: 20070404
  Receipt Date: 20061002
  Transmission Date: 20071010
  Serious: Yes (Other)
  Sender: FDA-Public Use
  Company Number: HQWYE659205OCT06

PATIENT
  Age: 64 Year
  Sex: Female
  Weight: 57.66 kg

DRUGS (4)
  1. ALAVERT [Suspect]
     Indication: EYE PRURITUS
     Dosage: 1 TABLET 1X PER 1 DAY, ORAL
     Route: 048
     Dates: start: 20060929, end: 20060929
  2. ALAVERT [Suspect]
     Indication: LACRIMATION INCREASED
     Dosage: 1 TABLET 1X PER 1 DAY, ORAL
     Route: 048
     Dates: start: 20060929, end: 20060929
  3. ALAVERT [Suspect]
     Indication: RHINORRHOEA
     Dosage: 1 TABLET 1X PER 1 DAY, ORAL
     Route: 048
     Dates: start: 20060929, end: 20060929
  4. ALAVERT [Suspect]
     Indication: THROAT IRRITATION
     Dosage: 1 TABLET 1X PER 1 DAY, ORAL
     Route: 048
     Dates: start: 20060929, end: 20060929

REACTIONS (2)
  - HEART RATE INCREASED [None]
  - RESTLESSNESS [None]
